FAERS Safety Report 14741630 (Version 6)
Quarter: 2018Q3

REPORT INFORMATION
  Report Type: Spontaneous
  Country: DE (occurrence: DE)
  Receive Date: 20180410
  Receipt Date: 20180918
  Transmission Date: 20181010
  Serious: Yes (Hospitalization, Other)
  Sender: FDA-Public Use
  Company Number: DE-BIOGEN-2018BI00547876

PATIENT
  Age: 25 Year
  Sex: Female

DRUGS (2)
  1. ZINBRYTA [Suspect]
     Active Substance: DACLIZUMAB
     Indication: RELAPSING-REMITTING MULTIPLE SCLEROSIS
     Route: 058
     Dates: start: 201704, end: 20171207
  2. VITAMIN D [Concomitant]
     Active Substance: CHOLECALCIFEROL
     Indication: PRODUCT USED FOR UNKNOWN INDICATION
     Route: 065

REACTIONS (11)
  - Abdominal pain upper [Unknown]
  - Eosinophil percentage increased [Unknown]
  - Bradycardia [Unknown]
  - Immune reconstitution inflammatory syndrome [Unknown]
  - Lymphadenopathy [Unknown]
  - Dermatitis psoriasiform [Not Recovered/Not Resolved]
  - Drug ineffective [Recovered/Resolved]
  - Lymphocyte percentage decreased [Unknown]
  - Drug-induced liver injury [Not Recovered/Not Resolved]
  - Multiple sclerosis relapse [Recovered/Resolved with Sequelae]
  - Eosinophil count decreased [Unknown]

NARRATIVE: CASE EVENT DATE: 20170721
